FAERS Safety Report 17066877 (Version 21)
Quarter: 2020Q4

REPORT INFORMATION
  Report Type: Spontaneous
  Country: US (occurrence: US)
  Receive Date: 20191122
  Receipt Date: 20201124
  Transmission Date: 20210113
  Serious: Yes (Other)
  Sender: FDA-Public Use
  Company Number: US-PFIZER INC-2018408777

PATIENT
  Age: 77 Year
  Sex: Female
  Weight: 95 kg

DRUGS (5)
  1. ARTHROTEC [Suspect]
     Active Substance: DICLOFENAC SODIUM\MISOPROSTOL
     Dosage: 2 TABLETS, DAILY
  2. ARTHROTEC [Suspect]
     Active Substance: DICLOFENAC SODIUM\MISOPROSTOL
     Dosage: UNK (50 MG/200 MCG X 90)
  3. ARTHROTEC [Suspect]
     Active Substance: DICLOFENAC SODIUM\MISOPROSTOL
     Dosage: UNK, 2X/DAY
  4. ARTHROTEC [Suspect]
     Active Substance: DICLOFENAC SODIUM\MISOPROSTOL
     Indication: COSTOCHONDRITIS
     Dosage: UNK, 2X/DAY
     Route: 048
     Dates: start: 2016
  5. ARTHROTEC [Suspect]
     Active Substance: DICLOFENAC SODIUM\MISOPROSTOL
     Dosage: UNK, 1X/DAY
     Route: 048
     Dates: start: 202008

REACTIONS (16)
  - Dysgraphia [Unknown]
  - Tremor [Unknown]
  - Drug effective for unapproved indication [Unknown]
  - Autoimmune disorder [Unknown]
  - Product use in unapproved indication [Unknown]
  - Drug dependence [Unknown]
  - Seizure [Unknown]
  - Movement disorder [Unknown]
  - Product prescribing error [Unknown]
  - Heart rate irregular [Unknown]
  - Dyspnoea [Unknown]
  - Amnesia [Unknown]
  - Intentional product misuse [Unknown]
  - Off label use [Unknown]
  - Diastolic dysfunction [Unknown]
  - Frustration tolerance decreased [Unknown]

NARRATIVE: CASE EVENT DATE: 201909
